FAERS Safety Report 11719620 (Version 2)
Quarter: 2015Q4

REPORT INFORMATION
  Report Type: Spontaneous
  Country: IT (occurrence: IT)
  Receive Date: 20151110
  Receipt Date: 20151113
  Transmission Date: 20160304
  Serious: Yes (Other)
  Sender: FDA-Public Use
  Company Number: IT-TEVA-606430ACC

PATIENT
  Age: 60 Year
  Sex: Male
  Weight: 54 kg

DRUGS (3)
  1. FLUOROURACIL. [Suspect]
     Active Substance: FLUOROURACIL
     Dosage: 3110 MG CYCLICAL
     Route: 041
     Dates: start: 20150910, end: 20151022
  2. OXALIPLATINO SUN - 5MG/ML CONCENTRATO PER SOLUZIONE PER INFUSIONE [Suspect]
     Active Substance: OXALIPLATIN
     Indication: GASTRIC CANCER
     Dosage: 110 MG CYCLICAL
     Route: 042
     Dates: start: 20150910, end: 20151022
  3. FLUOROURACIL. [Suspect]
     Active Substance: FLUOROURACIL
     Indication: GASTRIC CANCER
     Dosage: 518 MG CYCLICAL
     Route: 040
     Dates: start: 20150910, end: 20151022

REACTIONS (1)
  - Hypercreatininaemia [Unknown]

NARRATIVE: CASE EVENT DATE: 20150924
